FAERS Safety Report 21362987 (Version 1)
Quarter: 2022Q3

REPORT INFORMATION
  Report Type: Report from Study
  Country: CA (occurrence: CA)
  Receive Date: 20220922
  Receipt Date: 20220922
  Transmission Date: 20221027
  Serious: Yes (Hospitalization)
  Sender: FDA-Public Use
  Company Number: CA-JNJFOC-20220933913

PATIENT
  Age: 28 Year
  Sex: Female

DRUGS (2)
  1. STELARA [Suspect]
     Active Substance: USTEKINUMAB
     Indication: Product used for unknown indication
     Dosage: LAST INJECTION ON 27-JUN-2022
     Route: 058
  2. STELARA [Suspect]
     Active Substance: USTEKINUMAB

REACTIONS (5)
  - Infection [Unknown]
  - Dehydration [Unknown]
  - Pollakiuria [Unknown]
  - Micturition urgency [Unknown]
  - Vomiting [Unknown]

NARRATIVE: CASE EVENT DATE: 20220801
